FAERS Safety Report 25686890 (Version 2)
Quarter: 2025Q4

REPORT INFORMATION
  Report Type: Spontaneous
  Country: US (occurrence: US)
  Receive Date: 20250816
  Receipt Date: 20251113
  Transmission Date: 20260117
  Serious: Yes (Other)
  Sender: AUROBINDO
  Company Number: US-AUROBINDO-AUR-APL-2025-041792

PATIENT
  Age: 69 Year
  Sex: Female

DRUGS (2)
  1. NIFEDIPINE [Suspect]
     Active Substance: NIFEDIPINE
     Indication: Raynaud^s phenomenon
     Dosage: UNK
     Route: 065
  2. SILDENAFIL [Suspect]
     Active Substance: SILDENAFIL
     Indication: Raynaud^s phenomenon
     Dosage: UNK
     Route: 065

REACTIONS (1)
  - Drug ineffective [Unknown]
